FAERS Safety Report 5477203-0 (Version None)
Quarter: 2007Q4

REPORT INFORMATION
  Report Type: 
  Country: None (occurrence: None)
  Receive Date: 20071004
  Receipt Date: 20071002
  Transmission Date: 20080405
  Serious: Yes (Hospitalization, Disabling)
  Sender: FDA-Public Use
  Company Number: B0487096A

PATIENT
  Age: 95 Year
  Sex: Female

DRUGS (9)
  1. ARIXTRA [Suspect]
     Indication: THROMBOSIS PROPHYLAXIS
     Dosage: 2.5MG PER DAY
     Route: 058
     Dates: start: 20070816, end: 20070827
  2. SIGMART [Concomitant]
     Route: 048
  3. NORVASC [Concomitant]
     Dosage: 5MG PER DAY
     Route: 048
  4. FRANDOL S [Concomitant]
     Dosage: 40MG PER DAY
     Route: 062
  5. METOPROLOL TARTRATE [Concomitant]
     Dosage: 60MG PER DAY
     Route: 048
  6. LOXONIN [Concomitant]
     Route: 048
  7. MUCOSTA [Concomitant]
     Dosage: 300MG PER DAY
     Route: 048
  8. LANSOPRAZOLE [Concomitant]
     Dosage: 15MG PER DAY
     Route: 048
  9. FERROMIA [Concomitant]
     Dosage: 100MG PER DAY
     Route: 048

REACTIONS (5)
  - POST PROCEDURAL HAEMATOMA [None]
  - POST PROCEDURAL INFECTION [None]
  - PYREXIA [None]
  - STAPHYLOCOCCAL INFECTION [None]
  - WOUND COMPLICATION [None]
